FAERS Safety Report 22070370 (Version 4)
Quarter: 2023Q2

REPORT INFORMATION
  Report Type: Report from Study
  Country: AE (occurrence: AE)
  Receive Date: 20230307
  Receipt Date: 20230412
  Transmission Date: 20230722
  Serious: Yes (Other)
  Sender: FDA-Public Use
  Company Number: AE-002147023-NVSC2023AE049639

PATIENT
  Sex: Female

DRUGS (4)
  1. KESIMPTA [Suspect]
     Active Substance: OFATUMUMAB
     Indication: Multiple sclerosis
     Dosage: 20 MG, QMO (1ST DOSE ON FRIDAY)
     Route: 058
     Dates: start: 20230224
  2. KESIMPTA [Suspect]
     Active Substance: OFATUMUMAB
     Dosage: UNK, (2ND DOSE ON FRIDAY)
     Route: 065
     Dates: start: 20230303
  3. KESIMPTA [Suspect]
     Active Substance: OFATUMUMAB
     Dosage: UNK, (3 RD DOSE ON FRIDAY)
     Route: 065
     Dates: start: 20230310
  4. KESIMPTA [Suspect]
     Active Substance: OFATUMUMAB
     Dosage: UNK, (4TH DOSE ON WEDNESDAY)
     Route: 065
     Dates: start: 20230322

REACTIONS (6)
  - Haemorrhage urinary tract [Recovered/Resolved]
  - Headache [Not Recovered/Not Resolved]
  - Intermenstrual bleeding [Recovered/Resolved]
  - Anxiety [Recovered/Resolved]
  - Abdominal pain upper [Recovered/Resolved]
  - Pyrexia [Recovered/Resolved]

NARRATIVE: CASE EVENT DATE: 20230224
